FAERS Safety Report 9578428 (Version 1)
Quarter: 2013Q4

REPORT INFORMATION
  Report Type: Spontaneous
  Country: US (occurrence: US)
  Receive Date: 20131001
  Receipt Date: 20131001
  Transmission Date: 20140711
  Serious: No
  Sender: FDA-Public Use
  Company Number: US-AMGEN-USASP2013012799

PATIENT
  Sex: Female
  Weight: 122.4 kg

DRUGS (8)
  1. ENBREL [Suspect]
     Indication: PSORIASIS
     Dosage: 50 MG, QWK
     Route: 058
  2. MELOXICAM [Concomitant]
     Dosage: 7.5 MG, UNK
  3. PRAVASTATIN [Concomitant]
     Dosage: 10 MG, UNK
  4. BABY ASPIRIN [Concomitant]
     Dosage: 81 MG, UNK
  5. FOLIC ACID [Concomitant]
     Dosage: 5 MG, UNK
  6. CARVEDILOL [Concomitant]
     Dosage: 12.5 MG, UNK
  7. LISINOPRIL [Concomitant]
     Dosage: 10 MG, UNK
  8. HYALGAN [Concomitant]
     Dosage: 20MG/ 2ML

REACTIONS (2)
  - Nasopharyngitis [Unknown]
  - Influenza [Unknown]
